FAERS Safety Report 15166699 (Version 1)
Quarter: 2018Q3

REPORT INFORMATION
  Report Type: Spontaneous
  Country: US (occurrence: US)
  Receive Date: 20180719
  Receipt Date: 20180719
  Transmission Date: 20181010
  Serious: Yes (Other)
  Sender: FDA-Public Use
  Company Number: US-BAYER-2018-130917

PATIENT
  Age: 57 Year
  Sex: Male

DRUGS (1)
  1. BETASERON [Suspect]
     Active Substance: INTERFERON BETA-1B
     Indication: MULTIPLE SCLEROSIS
     Dosage: UNK
     Dates: start: 2017

REACTIONS (6)
  - Fatigue [None]
  - Multiple sclerosis relapse [None]
  - Depression [None]
  - Goitre [None]
  - Depressed mood [None]
  - Thyroid disorder [None]

NARRATIVE: CASE EVENT DATE: 201806
